FAERS Safety Report 7350825-8 (Version None)
Quarter: 2011Q1

REPORT INFORMATION
  Report Type: 
  Country: None (occurrence: None)
  Receive Date: 20110225
  Receipt Date: 20110128
  Transmission Date: 20110831
  Serious: Yes (Other)
  Sender: FDA-Public Use
  Company Number: 813786

PATIENT
  Sex: Female

DRUGS (1)
  1. CIPROFLOXACIN IN DEXTROSE 5% [Suspect]
     Indication: PRODUCT USED FOR UNKNOWN INDICATION
     Dosage: 400 MG, Q12HR, INTRAVENOUS DRIP
     Route: 041
     Dates: start: 20110101, end: 20110101

REACTIONS (1)
  - INFUSION SITE ERYTHEMA [None]
